FAERS Safety Report 5884150-9 (Version None)
Quarter: 2008Q3

REPORT INFORMATION
  Report Type: 
  Country: None (occurrence: None)
  Receive Date: 20080915
  Receipt Date: 20080910
  Transmission Date: 20090109
  Serious: Yes (Life-Threatening, Hospitalization)
  Sender: FDA-Public Use
  Company Number: PHEH2008US08051

PATIENT
  Sex: Male

DRUGS (4)
  1. DESFERAL [Suspect]
     Indication: HAEMOCHROMATOSIS
     Dosage: 2 G, QD
     Route: 042
     Dates: end: 20050401
  2. DESFERAL [Suspect]
     Dosage: 2 GRAMS IV QD
     Dates: end: 20080301
  3. EXJADE [Suspect]
     Indication: HAEMOCHROMATOSIS
     Dosage: 1500 MG, QD
     Route: 048
     Dates: start: 20050401
  4. EXJADE [Suspect]
     Dosage: 1 GRAM QD
     Route: 048
     Dates: start: 20080301

REACTIONS (8)
  - BILE DUCT STENOSIS [None]
  - BIOPSY LIVER [None]
  - BLOOD BILIRUBIN INCREASED [None]
  - COAGULOPATHY [None]
  - HEPATIC ENCEPHALOPATHY [None]
  - HEPATIC FAILURE [None]
  - INTERNATIONAL NORMALISED RATIO INCREASED [None]
  - JAUNDICE [None]
